FAERS Safety Report 17835946 (Version 2)
Quarter: 2020Q3

REPORT INFORMATION
  Report Type: Report from Study
  Country: US (occurrence: US)
  Receive Date: 20200528
  Receipt Date: 20200925
  Transmission Date: 20201103
  Serious: Yes (Other)
  Sender: FDA-Public Use
  Company Number: US-EXELIXIS-XL18420030069

PATIENT
  Age: 62 Year
  Sex: Male

DRUGS (30)
  1. ATEZOLIZUMAB. [Suspect]
     Active Substance: ATEZOLIZUMAB
     Dosage: 1200 MG, Q3WEEKS
     Route: 042
     Dates: start: 20200623
  2. PROTONIX [Concomitant]
     Active Substance: PANTOPRAZOLE SODIUM
  3. ALLEGRA D?12 HOUR [Concomitant]
     Active Substance: FEXOFENADINE HYDROCHLORIDE\PSEUDOEPHEDRINE HYDROCHLORIDE
  4. PROBIOTIC [Concomitant]
     Active Substance: PROBIOTICS NOS
  5. XL184 [Suspect]
     Active Substance: CABOZANTINIB
     Indication: HORMONE-REFRACTORY PROSTATE CANCER
     Dosage: 40 MG, QD
     Route: 048
     Dates: start: 20200218
  6. NORCO [Concomitant]
     Active Substance: ACETAMINOPHEN\HYDROCODONE BITARTRATE
  7. ZENDOCRINE [Concomitant]
  8. CAPSICUM [Concomitant]
     Active Substance: CAPSICUM
  9. COENZYME Q10 [Concomitant]
     Active Substance: DIETARY SUPPLEMENT\UBIDECARENONE
  10. MIRALAX [Concomitant]
     Active Substance: POLYETHYLENE GLYCOL 3350
  11. MILK OF MAGNESIA [Concomitant]
     Active Substance: MAGNESIUM HYDROXIDE
  12. LEVOTHYROXINE SODIUM. [Concomitant]
     Active Substance: LEVOTHYROXINE SODIUM
  13. ZOFRAN [Concomitant]
     Active Substance: ONDANSETRON HYDROCHLORIDE
  14. MULTIVITAMIN [Concomitant]
     Active Substance: VITAMINS
  15. TURMERIC W/BLACK PEPPER [Concomitant]
  16. ATEZOLIZUMAB. [Suspect]
     Active Substance: ATEZOLIZUMAB
     Indication: HORMONE-REFRACTORY PROSTATE CANCER
     Dosage: 1200 MG, Q3WEEKS
     Route: 042
  17. MOBIC [Concomitant]
     Active Substance: MELOXICAM
  18. LOSARTAN POTASSIUM AND HYDROCHLOROTHIAZIDE [Concomitant]
     Active Substance: HYDROCHLOROTHIAZIDE\LOSARTAN POTASSIUM
  19. MINERALS [Concomitant]
     Active Substance: MINERALS
  20. FRANKINCENSE OIL [Concomitant]
     Active Substance: FRANKINCENSE OIL
  21. IBUPROFEN. [Concomitant]
     Active Substance: IBUPROFEN
  22. ANTIOXIDANTS NOS [Concomitant]
  23. VITAMIN D [Concomitant]
     Active Substance: VITAMIN D NOS
  24. CYMBALTA [Concomitant]
     Active Substance: DULOXETINE HYDROCHLORIDE
  25. LOVENOX [Concomitant]
     Active Substance: ENOXAPARIN SODIUM
  26. FLONASE [Concomitant]
     Active Substance: FLUTICASONE PROPIONATE
  27. FLAXSEED [Concomitant]
     Active Substance: FLAX SEED
  28. TYLENOL [Concomitant]
     Active Substance: ACETAMINOPHEN
  29. ZOMETA [Concomitant]
     Active Substance: ZOLEDRONIC ACID
  30. SOVEREIGN SILVER [Concomitant]

REACTIONS (1)
  - Colitis [Recovered/Resolved]

NARRATIVE: CASE EVENT DATE: 20200520
